FAERS Safety Report 10153419 (Version 1)
Quarter: 2014Q2

REPORT INFORMATION
  Report Type: Spontaneous
  Country: US (occurrence: US)
  Receive Date: 20140505
  Receipt Date: 20140505
  Transmission Date: 20141212
  Serious: No
  Sender: FDA-Public Use
  Company Number: US-ASTRAZENECA-2013SE52611

PATIENT
  Age: 71 Year
  Sex: Female
  Weight: 66.2 kg

DRUGS (8)
  1. PRILOSEC [Suspect]
     Indication: GASTROOESOPHAGEAL REFLUX DISEASE
     Route: 048
  2. METOPROLOL [Concomitant]
  3. ASPIRIN [Concomitant]
  4. UNSPECIFIED VITAMIN [Concomitant]
  5. CALCIUM [Concomitant]
  6. FISH OIL [Concomitant]
  7. BENAZEPRIL [Concomitant]
  8. PRAVASTATIN [Concomitant]

REACTIONS (3)
  - Gastritis [Unknown]
  - Arthralgia [Unknown]
  - Disease recurrence [Unknown]
